FAERS Safety Report 12460522 (Version 1)
Quarter: 2016Q2

REPORT INFORMATION
  Report Type: Spontaneous
  Country: BR (occurrence: BR)
  Receive Date: 20160613
  Receipt Date: 20160613
  Transmission Date: 20160815
  Serious: Yes (Other)
  Sender: FDA-Public Use
  Company Number: BR-PFIZER INC-2016291190

PATIENT
  Age: 30 Year
  Sex: Female
  Weight: 78 kg

DRUGS (9)
  1. FRONTAL [Suspect]
     Active Substance: ALPRAZOLAM
     Indication: DEPRESSION
     Dosage: 0.5 MG, UNK
     Dates: start: 19890918
  2. PURAN [Concomitant]
     Active Substance: LEVOTHYROXINE SODIUM
     Dosage: UNK
  3. ARADOIS H [Concomitant]
     Active Substance: HYDROCHLOROTHIAZIDE\LOSARTAN POTASSIUM
     Indication: HYPERTENSION
     Dosage: UNK
  4. FRONTAL [Suspect]
     Active Substance: ALPRAZOLAM
     Dosage: 1 MG, UNK
  5. SELOZOK [Concomitant]
     Active Substance: METOPROLOL SUCCINATE
     Indication: CARDIOMYOPATHY
     Dosage: 25 MG, 1X/DAY (STRENGTH 25 MG OF ONE TABLET AT NIGHT)
     Dates: start: 2002
  6. FRONTAL [Suspect]
     Active Substance: ALPRAZOLAM
     Dosage: 2 MG, UNK
  7. SELOZOK [Concomitant]
     Active Substance: METOPROLOL SUCCINATE
     Indication: CARDIOMYOPATHY
     Dosage: 50 MG, 1X/DAY (STRENGTH 50 MG OF ONE TABLET IN THE MORNING)
     Dates: start: 2002
  8. SIMVASTATIN. [Concomitant]
     Active Substance: SIMVASTATIN
     Dosage: UNK
  9. OMEPRAZOLE. [Concomitant]
     Active Substance: OMEPRAZOLE
     Indication: PROPHYLAXIS
     Dosage: UNK

REACTIONS (32)
  - Drug dependence [Unknown]
  - Blindness [Unknown]
  - Exostosis [Unknown]
  - Hypertension [Unknown]
  - Condition aggravated [Unknown]
  - Tongue paralysis [Unknown]
  - Speech disorder [Unknown]
  - Peripheral swelling [Not Recovered/Not Resolved]
  - Thyroid disorder [Unknown]
  - Intervertebral disc protrusion [Unknown]
  - Depression [Unknown]
  - Nervousness [Unknown]
  - Intentional product misuse [Unknown]
  - Dyspnoea [Unknown]
  - Weight control [Unknown]
  - Feeling hot [Unknown]
  - Thirst [Unknown]
  - Angina pectoris [Unknown]
  - Papule [Unknown]
  - Fall [Unknown]
  - Cardiac disorder [Unknown]
  - Pain [Unknown]
  - Muscle twitching [Unknown]
  - Headache [Unknown]
  - Eye swelling [Not Recovered/Not Resolved]
  - Cardiomyopathy [Unknown]
  - Gait disturbance [Unknown]
  - Fear [Unknown]
  - Hypoaesthesia [Unknown]
  - Chest pain [Unknown]
  - Diarrhoea [Unknown]
  - Anxiety [Unknown]

NARRATIVE: CASE EVENT DATE: 2002
